FAERS Safety Report 7767909-2 (Version None)
Quarter: 2011Q3

REPORT INFORMATION
  Report Type: 
  Country: None (occurrence: None)
  Receive Date: 20110922
  Receipt Date: 20101005
  Transmission Date: 20111222
  Serious: No
  Sender: FDA-Public Use
  Company Number: US-ASTRAZENECA-2010SE47211

PATIENT
  Sex: Male
  Weight: 113.4 kg

DRUGS (2)
  1. TEGRETOL [Concomitant]
     Indication: TRIGEMINAL NEURALGIA
  2. SEROQUEL XR [Suspect]
     Indication: SLEEP DISORDER
     Dosage: 1600 MG OVER TWO DAYS
     Route: 048

REACTIONS (4)
  - PSYCHOTIC DISORDER [None]
  - FALL [None]
  - INJURY [None]
  - DELUSION [None]
